FAERS Safety Report 8021137-4 (Version None)
Quarter: 2012Q1

REPORT INFORMATION
  Report Type: 
  Country: None (occurrence: None)
  Receive Date: 20120104
  Receipt Date: 20111228
  Transmission Date: 20120608
  Serious: No
  Sender: FDA-Public Use
  Company Number: US-PFIZER INC-2011316969

PATIENT
  Sex: Female
  Weight: 77 kg

DRUGS (3)
  1. IBUPROFEN [Suspect]
     Dosage: UNK
  2. ACETYLSALICYLIC ACID SRT [Suspect]
     Dosage: UNK
  3. POTASSIUM PENICILLIN G [Suspect]
     Dosage: UNK

REACTIONS (1)
  - DRUG HYPERSENSITIVITY [None]
